FAERS Safety Report 13363301 (Version 1)
Quarter: 2017Q1

REPORT INFORMATION
  Report Type: Spontaneous
  Country: US (occurrence: US)
  Receive Date: 20170322
  Receipt Date: 20170322
  Transmission Date: 20170429
  Serious: Yes (Other)
  Sender: FDA-Public Use
  Company Number: None

PATIENT
  Age: 58 Year
  Sex: Female
  Weight: 54.5 kg

DRUGS (2)
  1. RIBAVIRIN 600MG UNKNOWN [Suspect]
     Active Substance: RIBAVIRIN
     Indication: HEPATITIS C
     Route: 048
     Dates: start: 20161220
  2. EPCLUSA [Suspect]
     Active Substance: SOFOSBUVIR\VELPATASVIR

REACTIONS (6)
  - Blood glucose increased [None]
  - Asthenia [None]
  - Blood pressure increased [None]
  - Fatigue [None]
  - Dizziness [None]
  - Hepatic pain [None]

NARRATIVE: CASE EVENT DATE: 20170123
